FAERS Safety Report 22389742 (Version 1)
Quarter: 2023Q2

REPORT INFORMATION
  Report Type: Spontaneous
  Country: CN (occurrence: CN)
  Receive Date: 20230531
  Receipt Date: 20230531
  Transmission Date: 20230722
  Serious: Yes (Other)
  Sender: FDA-Public Use
  Company Number: None

PATIENT
  Age: 60 Year
  Sex: Female
  Weight: 56 kg

DRUGS (4)
  1. CYCLOPHOSPHAMIDE [Suspect]
     Active Substance: CYCLOPHOSPHAMIDE
     Indication: Breast cancer female
     Dosage: AT 11: 40 HRS, 0.9 G, QD (DILUTED WITH 100 ML OF SODIUM CHLORIDE)
     Route: 041
     Dates: start: 20230415, end: 20230415
  2. SODIUM CHLORIDE [Suspect]
     Active Substance: SODIUM CHLORIDE
     Indication: Medication dilution
     Dosage: AT 11: 40 HRS, STRENGTH: 0.9%, 100 ML, QD (USED TO DILUTE 0.9 G CYCLOPHOSPHAMIDE)
     Route: 041
     Dates: start: 20230415, end: 20230415
  3. SODIUM CHLORIDE [Suspect]
     Active Substance: SODIUM CHLORIDE
     Dosage: AT 11: 40 HRS, STRENGTH: 0.9%, 100 ML, QD (USED TO DILUTE 150 MG PHARMORUBICIN)
     Route: 041
     Dates: start: 20230415, end: 20230415
  4. EPIRUBICIN [Suspect]
     Active Substance: EPIRUBICIN
     Indication: Breast cancer female
     Dosage: AT 11: 40 HRS, 150 MG, QD (DILUTED WITH 100 ML OF 0.9% SODIUM CHLORIDE)
     Route: 041
     Dates: start: 20230415, end: 20230415

REACTIONS (3)
  - Dizziness [Recovered/Resolved]
  - Chest discomfort [Recovered/Resolved]
  - Pyrexia [Recovering/Resolving]

NARRATIVE: CASE EVENT DATE: 20230415
